FAERS Safety Report 7220351-5 (Version None)
Quarter: 2011Q1

REPORT INFORMATION
  Report Type: 
  Country: None (occurrence: None)
  Receive Date: 20110111
  Receipt Date: 20110105
  Transmission Date: 20110831
  Serious: Yes (Other)
  Sender: FDA-Public Use
  Company Number: US-ABBOTT-11P-163-0695568-00

PATIENT
  Sex: Female
  Weight: 88.076 kg

DRUGS (5)
  1. LUPRON DEPOT [Suspect]
     Route: 050
     Dates: start: 20090801, end: 20100201
  2. NORETHINDRONE [Concomitant]
     Indication: HORMONE THERAPY
     Dates: start: 20110105
  3. LUPRON DEPOT [Suspect]
     Indication: ENDOMETRIOSIS
     Route: 050
     Dates: start: 20070901, end: 20080301
  4. LUPRON DEPOT [Suspect]
     Route: 050
     Dates: start: 20110104
  5. ZYRTEC [Concomitant]
     Indication: HYPERSENSITIVITY
     Route: 048

REACTIONS (5)
  - OVARIAN ADHESION [None]
  - PAIN IN EXTREMITY [None]
  - ABDOMINAL PAIN [None]
  - OVARIAN CYST [None]
  - HOT FLUSH [None]
